FAERS Safety Report 14986968 (Version 1)
Quarter: 2018Q2

REPORT INFORMATION
  Report Type: Spontaneous
  Country: DE (occurrence: DE)
  Receive Date: 20180608
  Receipt Date: 20180608
  Transmission Date: 20180711
  Serious: Yes (Hospitalization)
  Sender: FDA-Public Use
  Company Number: DE-TEVA-2018-DE-902984

PATIENT
  Age: 92 Year
  Sex: Female

DRUGS (5)
  1. LAMOTRIGIN [Concomitant]
     Active Substance: LAMOTRIGINE
     Dosage: 1-0-1-0,
     Route: 048
  2. DONEPEZIL. [Concomitant]
     Active Substance: DONEPEZIL
     Dosage: 1-0-0-0,
     Route: 048
  3. TRIAMTERENE/HYDROCHLOROTHIAZIDE [Suspect]
     Active Substance: HYDROCHLOROTHIAZIDE\TRIAMTERENE
     Dosage: 50|25 MG, 1-0-0-0, TABLET
     Route: 048
  4. METAMIZOL [Concomitant]
     Active Substance: METAMIZOLE SODIUM
     Dosage: 1-0-1-0,
     Route: 048
  5. PANTOPRAZOL [Concomitant]
     Active Substance: PANTOPRAZOLE SODIUM
     Dosage: 1-0-0-0,
     Route: 048

REACTIONS (14)
  - General physical health deterioration [Unknown]
  - Localised infection [Unknown]
  - Language disorder [Unknown]
  - Fall [Unknown]
  - Electrolyte imbalance [Unknown]
  - Rales [Unknown]
  - Atrial fibrillation [Unknown]
  - Anaemia [Unknown]
  - Hyponatraemia [Unknown]
  - Personality change [Unknown]
  - Dehydration [Unknown]
  - Gait disturbance [Unknown]
  - Oedema peripheral [Unknown]
  - Dry skin [Unknown]
